FAERS Safety Report 7221393-6 (Version None)
Quarter: 2011Q1

REPORT INFORMATION
  Report Type: 
  Country: None (occurrence: None)
  Receive Date: 20110103
  Receipt Date: 20101221
  Transmission Date: 20110831
  Serious: Yes (Other)
  Sender: FDA-Public Use
  Company Number: 2010AP002682

PATIENT
  Age: 69 Year
  Sex: Male

DRUGS (12)
  1. QUININE SULFATE [Concomitant]
  2. TIOTROPIUM BROMIDE (TIOTROPIUM BROMIDE) [Concomitant]
  3. MELOXICAM [Suspect]
     Indication: PAIN
     Dosage: 7.5 MG;QD
     Dates: start: 20100916
  4. ISOSORBIDE (ISOSORBIDE) [Concomitant]
  5. BISOPROLOL (BISOPROLOL) [Suspect]
     Indication: BLOOD PRESSURE INCREASED
     Dosage: 1.25 MG;QD
  6. OMEPRAZOLE [Concomitant]
  7. CORTICOSTEROID NOS (CORTICOSTEROID NOS) [Concomitant]
  8. SALBUTAMOL (SALBUTAMOL) [Concomitant]
  9. ASPIRIN [Suspect]
     Indication: CARDIAC ARREST
     Dosage: 75 MG;QD
  10. ASPIRIN [Suspect]
     Indication: MYOCARDIAL INFARCTION
     Dosage: 75 MG;QD
  11. FLUTICASONE PROPIONATE W/SALMETEROL (FLUTICASONE PROPIONATE W/SALMETER [Concomitant]
  12. RAMIPRIL [Suspect]
     Indication: BLOOD PRESSURE INCREASED
     Dosage: 1.25 MG;QD

REACTIONS (8)
  - DRUG INTERACTION [None]
  - CHROMATURIA [None]
  - EYE MOVEMENT DISORDER [None]
  - DEPRESSED LEVEL OF CONSCIOUSNESS [None]
  - CONFUSIONAL STATE [None]
  - DIARRHOEA [None]
  - HALLUCINATION [None]
  - DELIRIUM [None]
